FAERS Safety Report 4947205-9 (Version None)
Quarter: 2006Q1

REPORT INFORMATION
  Report Type: 
  Country: None (occurrence: None)
  Receive Date: 20060313
  Receipt Date: 20060228
  Transmission Date: 20060701
  Serious: Yes (Disabling)
  Sender: FDA-Public Use
  Company Number: 2006030447

PATIENT
  Age: 80 Year
  Sex: Female

DRUGS (2)
  1. DETROL LA [Suspect]
     Indication: HYPERTONIC BLADDER
     Dates: start: 20040101
  2. ARICEPT [Suspect]
     Indication: AMNESIA
     Dates: start: 20060101

REACTIONS (4)
  - AMNESIA [None]
  - INSOMNIA [None]
  - NAUSEA [None]
  - TREATMENT NONCOMPLIANCE [None]
